FAERS Safety Report 5096707-6 (Version None)
Quarter: 2006Q3

REPORT INFORMATION
  Report Type: 
  Country: None (occurrence: None)
  Receive Date: 20060831
  Receipt Date: 20060817
  Transmission Date: 20061208
  Serious: Yes (Hospitalization)
  Sender: FDA-Public Use
  Company Number: CA-2005-011325

PATIENT
  Age: 47 Year
  Sex: Female

DRUGS (6)
  1. BETASERON [Suspect]
     Indication: RELAPSING-REMITTING MULTIPLE SCLEROSIS
     Dosage: 8 MIU, 3X/WEEK, SUBCUTANEOUS
     Route: 058
     Dates: start: 19970505
  2. RISPERDAL [Concomitant]
  3. LITHIUM (LITHIUM) [Concomitant]
  4. ARICEPT [Concomitant]
  5. ASCORBIC ACID [Concomitant]
  6. VITAMIN E [Concomitant]

REACTIONS (2)
  - DIZZINESS [None]
  - OPTIC NEURITIS [None]
